FAERS Safety Report 21066199 (Version 1)
Quarter: 2022Q3

REPORT INFORMATION
  Report Type: Spontaneous
  Country: US (occurrence: US)
  Receive Date: 20220711
  Receipt Date: 20220711
  Transmission Date: 20221027
  Serious: No
  Sender: FDA-Public Use
  Company Number: US-INTRA-CELLULAR THERAPIES, INC.-2022ICT00492

PATIENT
  Age: 50 Year
  Sex: Female
  Weight: 58.957 kg

DRUGS (5)
  1. CAPLYTA [Suspect]
     Active Substance: LUMATEPERONE
     Indication: Bipolar disorder
     Dosage: 42 MG, 1X/DAY
     Route: 048
     Dates: start: 202204
  2. SEROQUEL [Concomitant]
     Active Substance: QUETIAPINE FUMARATE
  3. TEMAZEPAM [Concomitant]
     Active Substance: TEMAZEPAM
  4. TOPAMAX [Concomitant]
     Active Substance: TOPIRAMATE
  5. MYRBETRIQ [Concomitant]
     Active Substance: MIRABEGRON

REACTIONS (7)
  - Chest pain [Recovering/Resolving]
  - Drug ineffective [Not Recovered/Not Resolved]
  - Depression [Not Recovered/Not Resolved]
  - Feeling cold [Recovering/Resolving]
  - Middle insomnia [Not Recovered/Not Resolved]
  - Decreased appetite [Not Recovered/Not Resolved]
  - Weight decreased [Not Recovered/Not Resolved]

NARRATIVE: CASE EVENT DATE: 20220401
